FAERS Safety Report 24527283 (Version 1)
Quarter: 2024Q4

REPORT INFORMATION
  Report Type: Report from Study
  Country: US (occurrence: US)
  Receive Date: 20241021
  Receipt Date: 20241021
  Transmission Date: 20250115
  Serious: No
  Sender: ROCHE
  Company Number: US-ROCHE-3544764

PATIENT
  Age: 75 Year
  Sex: Male

DRUGS (8)
  1. COTELLIC [Suspect]
     Active Substance: COBIMETINIB
     Indication: Malignant melanoma
     Route: 048
  2. COTELLIC [Suspect]
     Active Substance: COBIMETINIB
     Indication: Prostatic specific antigen increased
  3. COTELLIC [Suspect]
     Active Substance: COBIMETINIB
     Indication: Hypertension
  4. COTELLIC [Suspect]
     Active Substance: COBIMETINIB
     Indication: Type 2 diabetes mellitus
  5. ZELBORAF [Suspect]
     Active Substance: VEMURAFENIB
     Indication: Malignant melanoma
     Route: 048
  6. ZELBORAF [Suspect]
     Active Substance: VEMURAFENIB
     Indication: Prostatic specific antigen increased
  7. ZELBORAF [Suspect]
     Active Substance: VEMURAFENIB
     Indication: Hypertension
  8. ZELBORAF [Suspect]
     Active Substance: VEMURAFENIB
     Indication: Type 2 diabetes mellitus

REACTIONS (2)
  - Product prescribing error [Unknown]
  - No adverse event [Unknown]
